FAERS Safety Report 8274368-2 (Version None)
Quarter: 2012Q1

REPORT INFORMATION
  Report Type: 
  Country: None (occurrence: None)
  Receive Date: 20120309
  Receipt Date: 20110920
  Transmission Date: 20120608
  Serious: Yes (Other)
  Sender: FDA-Public Use
  Company Number: PHEH2011US05495

PATIENT
  Age: 38 Year
  Sex: Male

DRUGS (2)
  1. TEKTURNA HCT [Suspect]
     Dosage: 150ALISKIEREN /12.5 HCT PER DAY, ORAL
     Route: 048
  2. EXFORGE [Suspect]
     Dosage: 10 AMLODIPIN/ 320 VALS PER DAY

REACTIONS (2)
  - HYPERTENSION [None]
  - DRUG INEFFECTIVE [None]
